FAERS Safety Report 16507174 (Version 4)
Quarter: 2020Q1

REPORT INFORMATION
  Report Type: Report from Study
  Country: US (occurrence: US)
  Receive Date: 20190701
  Receipt Date: 20200303
  Transmission Date: 20200409
  Serious: Yes (Hospitalization, Other)
  Sender: FDA-Public Use
  Company Number: US-ACTELION-A-US2019-186792

PATIENT
  Sex: Female
  Weight: 54.42 kg

DRUGS (7)
  1. VELETRI [Suspect]
     Active Substance: EPOPROSTENOL
     Dosage: 19 NG/KG, PER MIN
     Route: 042
  2. VELETRI [Suspect]
     Active Substance: EPOPROSTENOL
     Dosage: 35 NG/KG, PER MIN
     Route: 042
  3. VELETRI [Suspect]
     Active Substance: EPOPROSTENOL
     Indication: PULMONARY HYPERTENSION
     Dosage: 6 NG/KG, PER MIN
     Route: 042
  4. LETAIRIS [Concomitant]
     Active Substance: AMBRISENTAN
  5. SILDENAFIL CITRATE. [Concomitant]
     Active Substance: SILDENAFIL CITRATE
  6. VELETRI [Suspect]
     Active Substance: EPOPROSTENOL
     Dosage: 30 NG/KG, PER MIN
     Route: 042
  7. VELETRI [Suspect]
     Active Substance: EPOPROSTENOL
     Dosage: 14.2 NG/KG, PER MIN
     Route: 042

REACTIONS (42)
  - Back pain [Unknown]
  - Catheter site haemorrhage [Unknown]
  - Defaecation urgency [Unknown]
  - Myalgia [Unknown]
  - Bowel movement irregularity [Unknown]
  - Arthralgia [Unknown]
  - Oxygen saturation decreased [Unknown]
  - Walking distance test abnormal [Unknown]
  - Lung transplant [Unknown]
  - Lacrimation increased [Unknown]
  - Dyspnoea [Unknown]
  - Oxygen saturation abnormal [Unknown]
  - Unevaluable event [Unknown]
  - Incorrect product dosage form administered [Unknown]
  - Underdose [Unknown]
  - Heart rate increased [Unknown]
  - Decreased appetite [Recovering/Resolving]
  - Diarrhoea [Unknown]
  - Condition aggravated [Unknown]
  - Mouth swelling [Unknown]
  - Dyspnoea exertional [Unknown]
  - Oxygen consumption increased [Unknown]
  - Hypotension [Unknown]
  - Bone pain [Unknown]
  - Tooth repair [Unknown]
  - Pain in jaw [Unknown]
  - Pain in extremity [Unknown]
  - Periorbital pain [Unknown]
  - Corrective lens user [Unknown]
  - Nasopharyngitis [Unknown]
  - Palpitations [Unknown]
  - Pallor [Unknown]
  - Lung disorder [Unknown]
  - Flushing [Unknown]
  - Oxygen therapy [Unknown]
  - Dizziness [Unknown]
  - Chest pain [Unknown]
  - Eye pain [Unknown]
  - Headache [Unknown]
  - Palatal disorder [Unknown]
  - Anal incontinence [Unknown]
  - Loss of personal independence in daily activities [Unknown]
